FAERS Safety Report 4869808-2 (Version None)
Quarter: 2005Q4

REPORT INFORMATION
  Report Type: 
  Country: None (occurrence: None)
  Receive Date: 20051223
  Receipt Date: 20051213
  Transmission Date: 20060501
  Serious: Yes (Other)
  Sender: FDA-Public Use
  Company Number: S05-USA-04945-02

PATIENT
  Age: 7 Day
  Sex: Male
  Weight: 3.148 kg

DRUGS (3)
  1. LEXAPRO [Suspect]
     Dates: start: 20050601, end: 20051029
  2. LEXAPRO [Suspect]
     Dates: start: 20051029, end: 20051117
  3. PRENATAL VITAMINS [Concomitant]

REACTIONS (6)
  - DRUG EXPOSURE DURING PREGNANCY [None]
  - HAEMOGLOBIN DECREASED [None]
  - JAUNDICE NEONATAL [None]
  - NEONATAL DISORDER [None]
  - NEONATAL TACHYPNOEA [None]
  - PLATELET COUNT INCREASED [None]
